FAERS Safety Report 13427191 (Version 1)
Quarter: 2017Q2

REPORT INFORMATION
  Report Type: Spontaneous
  Country: RU (occurrence: RU)
  Receive Date: 20170411
  Receipt Date: 20170411
  Transmission Date: 20170830
  Serious: Yes (Hospitalization)
  Sender: FDA-Public Use
  Company Number: RU-ASTRAZENECA-2017SE35308

PATIENT
  Age: 54 Year
  Sex: Male

DRUGS (1)
  1. CRESTOR [Suspect]
     Active Substance: ROSUVASTATIN CALCIUM
     Route: 048
     Dates: start: 201702, end: 201703

REACTIONS (3)
  - Cardiac disorder [Unknown]
  - Viral upper respiratory tract infection [Unknown]
  - Drug dose omission [Unknown]
